FAERS Safety Report 19732356 (Version 2)
Quarter: 2021Q3

REPORT INFORMATION
  Report Type: Spontaneous
  Country: US (occurrence: US)
  Receive Date: 20210822
  Receipt Date: 20210824
  Transmission Date: 20211014
  Serious: Yes (Hospitalization)
  Sender: FDA-Public Use
  Company Number: US-TEVA-2021-US-1942374

PATIENT
  Age: 46 Year
  Sex: Female

DRUGS (5)
  1. HYDROMORPHONE [Suspect]
     Active Substance: HYDROMORPHONE
     Dosage: PATIENT CONTROLLED ANALGESIA
     Route: 065
  2. HYDROMORPHONE [Suspect]
     Active Substance: HYDROMORPHONE
     Indication: PROCEDURAL PAIN
     Dosage: 0.5MG
     Route: 065
  3. METHERGINE [Concomitant]
     Active Substance: METHYLERGONOVINE MALEATE
     Indication: PROCEDURAL PAIN
     Dosage: 0.5MG
     Route: 065
  4. HYDROMORPHONE [Suspect]
     Active Substance: HYDROMORPHONE
     Dosage: 0.3MG
     Route: 042
  5. DEXAMETHASONE. [Concomitant]
     Active Substance: DEXAMETHASONE
     Indication: PROCEDURAL PAIN
     Dosage: 5MG
     Route: 065

REACTIONS (6)
  - Myoclonus [Recovered/Resolved]
  - Postictal state [Recovered/Resolved]
  - Dyspnoea [Unknown]
  - Vision blurred [Unknown]
  - Neurotoxicity [Recovering/Resolving]
  - Tonic clonic movements [Recovered/Resolved]
